FAERS Safety Report 7652978-0 (Version None)
Quarter: 2011Q3

REPORT INFORMATION
  Report Type: 
  Country: None (occurrence: None)
  Receive Date: 20110803
  Receipt Date: 20110801
  Transmission Date: 20111222
  Serious: Yes (Other)
  Sender: FDA-Public Use
  Company Number: ZA-PFIZER INC-2011175445

PATIENT
  Age: 27 Year
  Sex: Female

DRUGS (1)
  1. LIPITOR [Suspect]
     Indication: TYPE IIA HYPERLIPIDAEMIA
     Dosage: 20MG DAILY
     Route: 048
     Dates: start: 20110525, end: 20110727

REACTIONS (1)
  - TENDONITIS [None]
